FAERS Safety Report 4565147-8 (Version None)
Quarter: 2005Q1

REPORT INFORMATION
  Report Type: 
  Country: None (occurrence: None)
  Receive Date: 20050131
  Receipt Date: 20050121
  Transmission Date: 20050727
  Serious: Yes (Hospitalization, Other)
  Sender: FDA-Public Use
  Company Number: PHFR2005GB00672

PATIENT
  Age: 59 Year
  Sex: Female

DRUGS (4)
  1. DICLOFENAC [Suspect]
     Indication: PAIN
     Dosage: 50 MG, TID
     Route: 048
     Dates: start: 20041101, end: 20041217
  2. ASPIRIN [Suspect]
     Indication: PROPHYLAXIS
     Dosage: 75 MG, QD
     Route: 048
     Dates: start: 20041101, end: 20041217
  3. SOTALOL HCL [Concomitant]
     Indication: BLOOD PRESSURE INCREASED
     Dosage: 40 MG, BID
     Route: 048
     Dates: start: 20000101
  4. BENDROFLUAZIDE [Concomitant]
     Indication: BLOOD PRESSURE INCREASED
     Dosage: 2.5MG NOCTE
     Route: 048
     Dates: start: 20000101

REACTIONS (5)
  - ANAEMIA [None]
  - GASTRITIS EROSIVE [None]
  - HIATUS HERNIA [None]
  - OESOPHAGITIS [None]
  - ULCER [None]
